FAERS Safety Report 8294342-X (Version None)
Quarter: 2012Q2

REPORT INFORMATION
  Report Type: 
  Country: None (occurrence: None)
  Receive Date: 20120418
  Receipt Date: 20120406
  Transmission Date: 20120825
  Serious: Yes (Hospitalization)
  Sender: FDA-Public Use
  Company Number: US-BRISTOL-MYERS SQUIBB COMPANY-16508400

PATIENT
  Age: 42 Year
  Sex: Female
  Weight: 66 kg

DRUGS (14)
  1. TAXOL [Suspect]
     Indication: OESOPHAGEAL CARCINOMA
     Dosage: LAST DOSE ON 9MAR2012; 25MG/M2
     Dates: start: 20120123
  2. DEXAMETHASONE SODIUM PHOSPHATE [Concomitant]
  3. MAGNESIUM SULFATE [Concomitant]
  4. SODIUM PHOSPHATE [Concomitant]
  5. GUAIFENESIN [Concomitant]
  6. RANITIDINE [Concomitant]
  7. DALTEPARIN SODIUM [Concomitant]
  8. PANTOPRAZOLE SODIUM [Concomitant]
  9. CISPLATIN [Suspect]
     Indication: OESOPHAGEAL CARCINOMA
     Dosage: LAST DOSE:09MAR2012; 50MG/M2
     Dates: start: 20120123
  10. PALONOSETRON [Concomitant]
  11. POTASSIUM CHLORIDE [Concomitant]
  12. SUCRALFATE [Concomitant]
  13. DIPHENHYDRAMINE HCL [Concomitant]
  14. FERROUS SULFATE TAB [Concomitant]

REACTIONS (3)
  - HYPOKALAEMIA [None]
  - OESOPHAGITIS [None]
  - DYSPHAGIA [None]
